FAERS Safety Report 20951331 (Version 1)
Quarter: 2022Q2

REPORT INFORMATION
  Report Type: Spontaneous
  Country: US (occurrence: None)
  Receive Date: 20220613
  Receipt Date: 20220613
  Transmission Date: 20220721
  Serious: No
  Sender: FDA-Public Use
  Company Number: None

PATIENT
  Age: 63 Year
  Sex: Female

DRUGS (1)
  1. ALORA [Suspect]
     Active Substance: ESTRADIOL
     Indication: Menopause
     Dates: start: 20220609, end: 20220613

REACTIONS (5)
  - Product substitution issue [None]
  - Insomnia [None]
  - Decreased appetite [None]
  - Nausea [None]
  - Depressed level of consciousness [None]

NARRATIVE: CASE EVENT DATE: 20220609
